FAERS Safety Report 7262464-8 (Version None)
Quarter: 2011Q1

REPORT INFORMATION
  Report Type: 
  Country: None (occurrence: None)
  Receive Date: 20110130
  Receipt Date: 20101129
  Transmission Date: 20110831
  Serious: No
  Sender: FDA-Public Use
  Company Number: US-ABBOTT-10P-163-0688162-00

PATIENT
  Age: 69 Year
  Sex: Female

DRUGS (7)
  1. METHOTREXATE [Concomitant]
     Indication: PRODUCT USED FOR UNKNOWN INDICATION
  2. PAROXETINE HCL [Concomitant]
     Indication: NERVOUSNESS
  3. BUSPIRONE [Concomitant]
     Indication: ANXIETY
  4. NADOLOL [Concomitant]
     Indication: HYPERTENSION
  5. PREDNISONE [Concomitant]
     Indication: PRODUCT USED FOR UNKNOWN INDICATION
  6. HUMIRA [Suspect]
     Indication: RHEUMATOID ARTHRITIS
     Dates: start: 20100801
  7. HYDROCHLOROTH [Concomitant]
     Indication: HYPERTENSION

REACTIONS (2)
  - COUGH [None]
  - NASAL CONGESTION [None]
